FAERS Safety Report 13031085 (Version 2)
Quarter: 2017Q1

REPORT INFORMATION
  Report Type: Spontaneous
  Country: US (occurrence: US)
  Receive Date: 20161215
  Receipt Date: 20170106
  Transmission Date: 20170428
  Serious: No
  Sender: FDA-Public Use
  Company Number: US-BAYER-2016-233055

PATIENT
  Sex: Female

DRUGS (1)
  1. CLIMARA [Suspect]
     Active Substance: ESTRADIOL
     Dosage: 0.05 MG/D, UNK
     Route: 062

REACTIONS (3)
  - Patient dissatisfaction with device [None]
  - Application site erythema [Unknown]
  - Product quality issue [None]
